FAERS Safety Report 11051022 (Version 2)
Quarter: 2017Q3

REPORT INFORMATION
  Report Type: Spontaneous
  Country: AT (occurrence: IT)
  Receive Date: 20150421
  Receipt Date: 20170808
  Transmission Date: 20171127
  Serious: Yes (Hospitalization, Other)
  Sender: FDA-Public Use
  Company Number: AT-SUN PHARMACEUTICAL INDUSTRIES LTD-2015R1-96025

PATIENT
  Age: 23 Month
  Sex: Male

DRUGS (3)
  1. NIFEDIPINE. [Suspect]
     Active Substance: NIFEDIPINE
     Indication: HYPERTENSIVE CRISIS
     Dosage: UNK
     Route: 065
  2. RAMIPRIL. [Suspect]
     Active Substance: RAMIPRIL
     Indication: HYPERTENSIVE CRISIS
     Dosage: UNK
     Route: 065
  3. ATENOLOL. [Suspect]
     Active Substance: ATENOLOL
     Indication: HYPERTENSIVE CRISIS
     Dosage: UNK
     Route: 065

REACTIONS (4)
  - Pupillary reflex impaired [Unknown]
  - Optic ischaemic neuropathy [Unknown]
  - Blindness [Not Recovered/Not Resolved]
  - Dehydration [Unknown]
